FAERS Safety Report 9605527 (Version 4)
Quarter: 2014Q1

REPORT INFORMATION
  Report Type: Report from Study
  Country: BR (occurrence: BR)
  Receive Date: 20131008
  Receipt Date: 20140314
  Transmission Date: 20141002
  Serious: Yes (Death, Hospitalization, Other)
  Sender: FDA-Public Use
  Company Number: PHHY2013BR112527

PATIENT
  Age: 87 Year
  Sex: Female
  Weight: 66 kg

DRUGS (5)
  1. ACLASTA [Suspect]
     Indication: OSTEOPOROSIS
     Dosage: 5 MG, ONE APPLICATION A YEAR
     Route: 042
     Dates: start: 20130805
  2. VALSARTAN [Concomitant]
     Indication: HYPERTENSION
     Dosage: 1 DF, DAILY
     Route: 048
     Dates: start: 201307
  3. PANTOPRAZOLE [Concomitant]
     Indication: GASTRIC ULCER
     Dosage: 1 DF, BID
     Route: 048
     Dates: start: 201309
  4. CALCIUM D3 [Concomitant]
     Indication: OSTEOPOROSIS
     Dosage: 1 DF, DAILY
     Route: 048
     Dates: start: 20130807
  5. OS CAL//CALCIUM CARBONATE [Concomitant]
     Indication: OSTEOPOROSIS
     Dosage: UNK UKN, UNK
     Dates: end: 2013

REACTIONS (6)
  - Lung infection [Fatal]
  - Sepsis [Fatal]
  - Pneumonia [Fatal]
  - Femur fracture [Not Recovered/Not Resolved]
  - Mobility decreased [Not Recovered/Not Resolved]
  - Medical device complication [Not Recovered/Not Resolved]
